FAERS Safety Report 16991010 (Version 1)
Quarter: 2019Q4

REPORT INFORMATION
  Report Type: Spontaneous
  Country: US (occurrence: US)
  Receive Date: 20191104
  Receipt Date: 20191104
  Transmission Date: 20200122
  Serious: No
  Sender: FDA-Public Use
  Company Number: US-SA-2019SA302665

PATIENT
  Age: 62 Year
  Sex: Male
  Weight: 82.99 kg

DRUGS (3)
  1. HYDROXYZINE HCL [Concomitant]
     Active Substance: HYDROXYZINE HYDROCHLORIDE
  2. DUPIXENT [Suspect]
     Active Substance: DUPILUMAB
     Indication: DERMATITIS ATOPIC
     Dosage: 300 MG, QOW
     Route: 058
  3. AQUAPHOR [MINERAL OIL LIGHT;PARAFFIN;PETROLATUM;WOOL ALCOHOLS] [Concomitant]

REACTIONS (1)
  - Pruritus [Unknown]
